FAERS Safety Report 12988171 (Version 1)
Quarter: 2016Q4

REPORT INFORMATION
  Report Type: Spontaneous
  Country: US (occurrence: US)
  Receive Date: 20161130
  Receipt Date: 20161130
  Transmission Date: 20170207
  Serious: Yes (Other)
  Sender: FDA-Public Use
  Company Number: US-RELYPSA-RLY2016003888

PATIENT
  Sex: Male

DRUGS (1)
  1. VELTASSA [Suspect]
     Active Substance: PATIROMER
     Indication: HYPERKALAEMIA
     Dosage: 8.4 MG, 4 TIMES A WEEK
     Route: 048
     Dates: start: 201611

REACTIONS (3)
  - Inappropriate schedule of drug administration [Unknown]
  - Constipation [Unknown]
  - Arteriovenous fistula thrombosis [Unknown]

NARRATIVE: CASE EVENT DATE: 2016
